FAERS Safety Report 18607277 (Version 1)
Quarter: 2020Q4

REPORT INFORMATION
  Report Type: Spontaneous
  Country: US (occurrence: US)
  Receive Date: 20201211
  Receipt Date: 20201211
  Transmission Date: 20210114
  Serious: No
  Sender: FDA-Public Use
  Company Number: US-BAYER-2020-263818

PATIENT
  Age: 44 Year
  Sex: Female

DRUGS (3)
  1. IBUPROFEN. [Suspect]
     Active Substance: IBUPROFEN
  2. MIRENA [Suspect]
     Active Substance: LEVONORGESTREL
     Indication: MENORRHAGIA
     Dosage: 20 ?G PER DAY, CONTINUOUSLY
     Route: 015
     Dates: start: 20200814, end: 202011
  3. AYGESTIN [Suspect]
     Active Substance: NORETHINDRONE ACETATE

REACTIONS (5)
  - Patient-device incompatibility [None]
  - Dysmenorrhoea [Not Recovered/Not Resolved]
  - Menorrhagia [Not Recovered/Not Resolved]
  - Device expulsion [Recovered/Resolved]
  - Tinnitus [None]

NARRATIVE: CASE EVENT DATE: 202011
